FAERS Safety Report 6282300-6 (Version None)
Quarter: 2009Q3

REPORT INFORMATION
  Report Type: 
  Country: None (occurrence: None)
  Receive Date: 20090722
  Receipt Date: 20090717
  Transmission Date: 20100115
  Serious: Yes (Other)
  Sender: FDA-Public Use
  Company Number: A0797493A

PATIENT
  Age: 47 Year
  Sex: Female

DRUGS (2)
  1. METHYLCELLULOSE (FORMULATION UNKNOWN) (METHYLCELLULOSE) [Suspect]
     Dosage: ORAL
     Route: 048
  2. CEPHALEXIN [Concomitant]

REACTIONS (1)
  - POST PROCEDURAL HAEMORRHAGE [None]
